FAERS Safety Report 19880913 (Version 2)
Quarter: 2021Q4

REPORT INFORMATION
  Report Type: Spontaneous
  Country: US (occurrence: US)
  Receive Date: 20210924
  Receipt Date: 20211019
  Transmission Date: 20220304
  Serious: No
  Sender: FDA-Public Use
  Company Number: US-JNJFOC-20210920018

PATIENT
  Age: 66 Year
  Sex: Female

DRUGS (1)
  1. DARZALEX FASPRO [Suspect]
     Active Substance: DARATUMUMAB\HYALURONIDASE-FIHJ
     Indication: Amyloidosis
     Dosage: CYCLE 1 DAY 1 DOSE
     Route: 058
     Dates: start: 20210825

REACTIONS (7)
  - Product administration error [Unknown]
  - Device issue [Unknown]
  - Device physical property issue [Unknown]
  - Needle issue [Unknown]
  - Product label issue [Unknown]
  - Off label use [Unknown]
  - Product use in unapproved indication [Unknown]

NARRATIVE: CASE EVENT DATE: 20210825
